FAERS Safety Report 5618500-5 (Version None)
Quarter: 2008Q1

REPORT INFORMATION
  Report Type: 
  Country: None (occurrence: None)
  Receive Date: 20080207
  Receipt Date: 20080206
  Transmission Date: 20080703
  Serious: Yes (Hospitalization)
  Sender: FDA-Public Use
  Company Number: D0055956A

PATIENT
  Age: 68 Year
  Sex: Male

DRUGS (6)
  1. ELONTRIL [Suspect]
     Indication: BIPOLAR DISORDER
     Dosage: 150MG TWICE PER DAY
     Route: 048
     Dates: start: 20071206, end: 20080201
  2. MIRTAZAPINE [Concomitant]
     Indication: SEDATION
     Dosage: 15MG AT NIGHT
     Route: 048
     Dates: start: 20071130, end: 20080201
  3. AMARYL [Concomitant]
     Indication: DIABETES MELLITUS
     Dosage: .5MG IN THE MORNING
     Route: 048
     Dates: start: 20071206, end: 20080201
  4. CALCIUM GLUCONATE [Concomitant]
     Route: 065
  5. PERENTEROL [Concomitant]
  6. ESPUMISAN [Concomitant]

REACTIONS (4)
  - DEPRESSION [None]
  - PARANOIA [None]
  - PAROTITIS [None]
  - PSEUDOMEMBRANOUS COLITIS [None]
